FAERS Safety Report 5680580-9 (Version None)
Quarter: 2008Q1

REPORT INFORMATION
  Report Type: 
  Country: None (occurrence: None)
  Receive Date: 20080326
  Receipt Date: 20080318
  Transmission Date: 20080703
  Serious: Yes (Other)
  Sender: FDA-Public Use
  Company Number: US-ALLERGAN-0803282US

PATIENT
  Sex: Male

DRUGS (1)
  1. OPTIVE [Suspect]
     Indication: DRY EYE
     Dosage: UNK, QD
     Route: 047
     Dates: start: 20070801

REACTIONS (1)
  - HYPERTENSION [None]
